FAERS Safety Report 8261324-3 (Version None)
Quarter: 2012Q2

REPORT INFORMATION
  Report Type: 
  Country: None (occurrence: None)
  Receive Date: 20120405
  Receipt Date: 20120328
  Transmission Date: 20120825
  Serious: Yes (Hospitalization, Other)
  Sender: FDA-Public Use
  Company Number: US-BAYER-2011-052349

PATIENT
  Age: 37 Year
  Sex: Female
  Weight: 56.689 kg

DRUGS (4)
  1. COMPAZINE [Concomitant]
     Indication: NAUSEA
     Dosage: 25 MG, TID AS NEEDED
     Route: 048
     Dates: start: 20081115
  2. REGLAN [Concomitant]
     Indication: GASTROOESOPHAGEAL REFLUX DISEASE
     Dosage: 10 MG, TID
     Route: 048
     Dates: start: 20081114
  3. YASMIN [Suspect]
     Indication: CONTRACEPTION
     Dosage: UNK
     Dates: start: 20030301, end: 20091001
  4. PROTONIX [Concomitant]
     Indication: GASTROOESOPHAGEAL REFLUX DISEASE
     Dosage: 40 MG, QD
     Route: 048
     Dates: start: 20081114

REACTIONS (11)
  - FLATULENCE [None]
  - CONSTIPATION [None]
  - ABDOMINAL DISTENSION [None]
  - SCAR [None]
  - ANXIETY [None]
  - DEPRESSION [None]
  - PAIN [None]
  - CHOLECYSTECTOMY [None]
  - DYSPEPSIA [None]
  - DIARRHOEA [None]
  - CHOLECYSTITIS CHRONIC [None]
